FAERS Safety Report 6879974-5 (Version None)
Quarter: 2010Q3

REPORT INFORMATION
  Report Type: 
  Country: None (occurrence: None)
  Receive Date: 20100728
  Receipt Date: 20100715
  Transmission Date: 20110219
  Serious: Yes (Other)
  Sender: FDA-Public Use
  Company Number: PHHY2010BR46243

PATIENT
  Age: 36 Year
  Sex: Female
  Weight: 56 kg

DRUGS (3)
  1. PARLODEL [Suspect]
     Indication: PITUITARY TUMOUR BENIGN
     Dosage: HALF TABLET (2.5 MG) DAILY
     Route: 048
  2. DIANE [Concomitant]
     Indication: POLYCYSTIC OVARIES
     Dosage: ONE TABLET ONCE A DAY
  3. NEOSALDINA [Concomitant]
     Indication: MIGRAINE
     Dosage: 40 TO 45 DROPS BID

REACTIONS (12)
  - ARRHYTHMIA [None]
  - CARDIAC OPERATION [None]
  - CHILLS [None]
  - DIZZINESS [None]
  - FEELING ABNORMAL [None]
  - LOSS OF CONSCIOUSNESS [None]
  - MEMORY IMPAIRMENT [None]
  - MIGRAINE [None]
  - NAUSEA [None]
  - SOMNOLENCE [None]
  - SYNCOPE [None]
  - VOMITING [None]
